FAERS Safety Report 19633686 (Version 10)
Quarter: 2022Q1

REPORT INFORMATION
  Report Type: Other
  Country: GB (occurrence: GB)
  Receive Date: 20210730
  Receipt Date: 20220128
  Transmission Date: 20220423
  Serious: Yes (Other)
  Sender: FDA-Public Use
  Company Number: GB-BAXTER-2017BAX039111

PATIENT

DRUGS (100)
  1. MELPHALAN [Suspect]
     Active Substance: MELPHALAN
     Indication: Plasma cell leukaemia
     Dosage: VMP REGIMEN, DAY 1 TO 4, CYCLE 2
     Route: 065
     Dates: start: 20171103, end: 20171106
  2. MELPHALAN [Suspect]
     Active Substance: MELPHALAN
     Dosage: 1 UNK (CYCLICAL)
     Route: 065
  3. MELPHALAN [Suspect]
     Active Substance: MELPHALAN
     Dosage: 14 MG, QD (1 CYCLE)
     Route: 065
     Dates: start: 20171107, end: 20171110
  4. MELPHALAN [Suspect]
     Active Substance: MELPHALAN
     Dosage: 14 MG, QD
     Route: 065
     Dates: start: 20171103, end: 20171103
  5. MELPHALAN [Suspect]
     Active Substance: MELPHALAN
     Dosage: 10 MG, PRN, AS NECESSARY
     Route: 065
  6. MELPHALAN [Suspect]
     Active Substance: MELPHALAN
     Dosage: VMP REGIMEN, DAY 1 TO 4, CYCLE 2
     Route: 065
     Dates: start: 20171103, end: 20171106
  7. MELPHALAN [Suspect]
     Active Substance: MELPHALAN
     Dosage: 14 MG
     Route: 065
     Dates: start: 20171110, end: 20171114
  8. MELPHALAN [Suspect]
     Active Substance: MELPHALAN
     Dosage: 14 MG, TID
     Route: 065
     Dates: start: 20171103, end: 20171106
  9. MELPHALAN [Suspect]
     Active Substance: MELPHALAN
     Dosage: UNK
     Route: 065
     Dates: start: 20171110, end: 20171110
  10. MELPHALAN [Suspect]
     Active Substance: MELPHALAN
     Dosage: UNK
     Route: 065
     Dates: start: 20171107
  11. MELPHALAN [Suspect]
     Active Substance: MELPHALAN
     Dosage: UNK
     Route: 065
     Dates: start: 20171106, end: 20171106
  12. MELPHALAN [Suspect]
     Active Substance: MELPHALAN
     Dosage: UNK
     Route: 065
     Dates: start: 20171110, end: 20171114
  13. MELPHALAN [Suspect]
     Active Substance: MELPHALAN
     Dosage: 1 CYCLE
     Route: 065
     Dates: start: 20171110
  14. MELPHALAN [Suspect]
     Active Substance: MELPHALAN
     Dosage: UNK
     Route: 065
     Dates: start: 20171103, end: 20171103
  15. MELPHALAN [Suspect]
     Active Substance: MELPHALAN
     Dosage: 14 MG, QD
     Route: 065
     Dates: start: 20171106, end: 20171106
  16. ALLOPURINOL [Suspect]
     Active Substance: ALLOPURINOL
     Indication: Product used for unknown indication
     Dosage: 300 MG
     Route: 065
     Dates: start: 20171120
  17. ALLOPURINOL [Suspect]
     Active Substance: ALLOPURINOL
     Dosage: 300 MG
     Route: 065
     Dates: start: 20171104, end: 20171120
  18. ALLOPURINOL [Suspect]
     Active Substance: ALLOPURINOL
     Dosage: 30 MG, QD
     Route: 065
     Dates: start: 20171120
  19. ALLOPURINOL [Suspect]
     Active Substance: ALLOPURINOL
     Dosage: 30 MG, QD
     Route: 065
     Dates: start: 20171104, end: 20171120
  20. ALLOPURINOL [Suspect]
     Active Substance: ALLOPURINOL
     Dosage: 300 MG, QD
     Route: 065
     Dates: start: 20181120
  21. ALLOPURINOL [Suspect]
     Active Substance: ALLOPURINOL
     Dosage: 30 MG, QD
     Route: 065
     Dates: start: 20171104, end: 20171120
  22. ALLOPURINOL [Suspect]
     Active Substance: ALLOPURINOL
     Dosage: 120 MG
     Route: 065
     Dates: start: 20171120
  23. ALLOPURINOL [Suspect]
     Active Substance: ALLOPURINOL
     Dosage: 300 MG
     Route: 065
     Dates: start: 20171104
  24. ALLOPURINOL [Suspect]
     Active Substance: ALLOPURINOL
     Dosage: UNSPECIFIED 16 DAYS
     Route: 065
     Dates: start: 20171120
  25. DEXAMETHASONE [Suspect]
     Active Substance: DEXAMETHASONE
     Indication: Plasma cell leukaemia
     Dosage: 20 MG, QD
     Route: 065
     Dates: start: 20171102, end: 20171106
  26. DEXAMETHASONE [Suspect]
     Active Substance: DEXAMETHASONE
     Dosage: 20 MG, QD
     Route: 065
  27. DEXAMETHASONE [Suspect]
     Active Substance: DEXAMETHASONE
     Dosage: 100 MG
     Route: 065
  28. SODIUM CHLORIDE [Suspect]
     Active Substance: SODIUM CHLORIDE
     Indication: Medication dilution
     Dosage: UNK, 1 CYCLE
     Route: 042
     Dates: start: 20171103, end: 20171106
  29. SODIUM CHLORIDE [Suspect]
     Active Substance: SODIUM CHLORIDE
     Dosage: UNK, 1 CYCLE
     Route: 041
     Dates: start: 20171110, end: 20171114
  30. SODIUM CHLORIDE [Suspect]
     Active Substance: SODIUM CHLORIDE
     Dosage: UNK (1 CYCLE), 0.9,  SOLUTION FOR INFUSION DAY 1 OF CYCLE 2, VMP REGIMEN, COMPOUNDED WITH BORTEZOMIB
     Route: 041
     Dates: start: 20171106, end: 20171106
  31. SODIUM CHLORIDE [Suspect]
     Active Substance: SODIUM CHLORIDE
     Dosage: UNK
     Route: 041
     Dates: start: 20171107, end: 201711
  32. SODIUM CHLORIDE [Suspect]
     Active Substance: SODIUM CHLORIDE
     Dosage: 1 UNK (CYCLICAL) 0.9 PERCENT ; SOLUTION FOR INFUSION DAY 1 OF CYCLE 2, VMP REGIMEN, COMPOUNDED WITH
     Route: 041
     Dates: start: 20171110, end: 20171110
  33. SODIUM CHLORIDE [Suspect]
     Active Substance: SODIUM CHLORIDE
     Dosage: 1 UNK (CYCLICAL) PER 9 PERCENT, SOLUTION FOR INFUSION DAY 1 OF CYCLE 2, VMP REGIMEN, COMPOUNDED WITH
     Route: 041
     Dates: start: 20171103, end: 20171103
  34. SODIUM CHLORIDE [Suspect]
     Active Substance: SODIUM CHLORIDE
     Dosage: 0.9 PERCENT, SOLUTION FOR INFUSION DAY 1 OF CYCLE 2, VMP REGIMEN, COMPOUNDED WITH BORTEZOMIB
     Route: 065
     Dates: start: 20171110, end: 20171110
  35. SODIUM CHLORIDE [Suspect]
     Active Substance: SODIUM CHLORIDE
     Dosage: UNK
     Route: 065
     Dates: start: 20171103
  36. SODIUM CHLORIDE [Suspect]
     Active Substance: SODIUM CHLORIDE
     Dosage: UNK, 1 CYCLE
     Route: 041
     Dates: start: 20171103, end: 20171106
  37. VELCADE [Suspect]
     Active Substance: BORTEZOMIB
     Indication: Plasma cell leukaemia
     Dosage: 2 MG
     Route: 058
     Dates: start: 20171106, end: 20171106
  38. VELCADE [Suspect]
     Active Substance: BORTEZOMIB
     Dosage: CYCLE 1, ON DAYS 1, 4, 8, 11, 22, 25, 29 AND 32
     Route: 058
  39. VELCADE [Suspect]
     Active Substance: BORTEZOMIB
     Dosage: 2 MG/M2
     Route: 058
     Dates: start: 20171103, end: 20171103
  40. VELCADE [Suspect]
     Active Substance: BORTEZOMIB
     Dosage: 2 MG
     Route: 058
     Dates: start: 20171110, end: 20171110
  41. VELCADE [Suspect]
     Active Substance: BORTEZOMIB
     Dosage: 1.8 MG
     Route: 058
     Dates: start: 20171103, end: 20171103
  42. VELCADE [Suspect]
     Active Substance: BORTEZOMIB
     Dosage: 1.8 MG/M2
     Route: 058
     Dates: start: 20171110, end: 20171114
  43. VELCADE [Suspect]
     Active Substance: BORTEZOMIB
     Dosage: 1.8 MG
     Route: 058
     Dates: start: 20171107, end: 201711
  44. VELCADE [Suspect]
     Active Substance: BORTEZOMIB
     Dosage: DAY 4 OF CYCLE 2, DOSE AS 2 MG, COMPOUNDED WITH SODIUM CHLORIDE, ON DAYS 1, 4, 8, 11, 22, 25, 29, 32
     Route: 058
     Dates: start: 20171106, end: 20171106
  45. VELCADE [Suspect]
     Active Substance: BORTEZOMIB
     Dosage: ON DAYS 1, 4, 8, 11, 22, 25, 29, 32, DAY 1 OF CYCLE 2; DOSE: 2 MG, COMPOUNDED WITH SODIUM CHLORIDE
     Route: 058
     Dates: start: 20171103, end: 20171103
  46. VELCADE [Suspect]
     Active Substance: BORTEZOMIB
     Dosage: DAY 8 OF CYCLE 2, DOSE: 2 MG, COMPOUNDED WITH SODIUM CHLORIDE, ON DAYS 1, 4, 8, 11, 22, 25, 29, 32
     Route: 058
     Dates: start: 20171110, end: 20171110
  47. VELCADE [Suspect]
     Active Substance: BORTEZOMIB
     Dosage: 1.3 MG/M2, 1 CYCLE POWDER)
     Route: 058
  48. VELCADE [Suspect]
     Active Substance: BORTEZOMIB
     Dosage: 1 MG/M2
     Route: 058
     Dates: start: 20171106, end: 20171106
  49. VELCADE [Suspect]
     Active Substance: BORTEZOMIB
     Dosage: 1.8 MG
     Route: 058
     Dates: start: 20171107, end: 201711
  50. VELCADE [Suspect]
     Active Substance: BORTEZOMIB
     Dosage: 2 MG/M2
     Route: 058
     Dates: start: 20171110, end: 20171114
  51. VELCADE [Suspect]
     Active Substance: BORTEZOMIB
     Dosage: UNK1.8 MG/M2 Q CYCLE / 1.3 MG/M2 DAILY / 1.8 MG/M2 UNK / DOSE TEXT, 1.3 MG/M2, 1 CYCLE / 1.8 MG/M
     Route: 065
  52. FENTANYL [Suspect]
     Active Substance: FENTANYL
     Indication: Product used for unknown indication
     Dosage: UNK
     Route: 062
     Dates: start: 20171108
  53. FENTANYL [Suspect]
     Active Substance: FENTANYL
     Dosage: 12 MCG
     Route: 065
     Dates: start: 20171108
  54. FENTANYL [Suspect]
     Active Substance: FENTANYL
     Dosage: UNK, Q1HR (FROM 08 NOV 2017)
     Route: 062
  55. FENTANYL [Suspect]
     Active Substance: FENTANYL
     Dosage: 12 MG, QH
     Route: 062
     Dates: start: 20171108
  56. FENTANYL [Suspect]
     Active Substance: FENTANYL
     Dosage: 12 MCG (FROM 08 NOV 2017)
     Route: 055
  57. PREDNISOLONE [Suspect]
     Active Substance: PREDNISOLONE
     Indication: Plasma cell leukaemia
     Dosage: 1 UNK CYCLICAL
     Route: 065
  58. PREDNISOLONE [Suspect]
     Active Substance: PREDNISOLONE
     Dosage: 70 MG, QD
     Route: 065
     Dates: start: 20171103, end: 20171106
  59. PREDNISOLONE [Suspect]
     Active Substance: PREDNISOLONE
     Dosage: 70 MG, QD
     Route: 065
     Dates: start: 20171103, end: 20171103
  60. PREDNISOLONE [Suspect]
     Active Substance: PREDNISOLONE
     Dosage: 70 MG, QD
     Route: 065
     Dates: start: 20171103, end: 20171103
  61. PREDNISONE [Suspect]
     Active Substance: PREDNISONE
     Indication: Plasma cell leukaemia
     Dosage: 70 MG, QD
     Route: 065
     Dates: start: 20171103, end: 20171106
  62. PREDNISONE [Suspect]
     Active Substance: PREDNISONE
     Dosage: 70 MG, QD ((1 CYCLE)
     Route: 065
     Dates: start: 20171103, end: 20171103
  63. PREDNISONE [Suspect]
     Active Substance: PREDNISONE
     Dosage: 1 CYCLICAL
     Route: 065
  64. PREDNISONE [Suspect]
     Active Substance: PREDNISONE
     Dosage: 70 MG, QD (1 CYCLE)
     Route: 065
  65. PREDNISONE [Suspect]
     Active Substance: PREDNISONE
     Dosage: UNK (1 CYCLE)
     Route: 065
  66. PREDNISONE [Suspect]
     Active Substance: PREDNISONE
     Dosage: UNK (1 CYCLE)
     Route: 065
     Dates: start: 20171106, end: 20171106
  67. PREDNISONE [Suspect]
     Active Substance: PREDNISONE
     Dosage: 70 MG, QD (1 CYCLE)
     Route: 065
     Dates: start: 20171106, end: 20171106
  68. PREDNISONE [Suspect]
     Active Substance: PREDNISONE
     Dosage: 70 MG
     Route: 065
  69. FENTANYL [Suspect]
     Active Substance: FENTANYL
     Indication: Product used for unknown indication
     Dosage: 12 MCG HQ
     Route: 062
     Dates: start: 20171108
  70. FENTANYL [Suspect]
     Active Substance: FENTANYL
     Dosage: 12 MG EVERY 1HR
     Route: 062
     Dates: start: 20171108
  71. FENTANYL [Suspect]
     Active Substance: FENTANYL
     Dosage: 12 MCG HQ
     Route: 062
     Dates: start: 20171108
  72. SERTRALINE [Suspect]
     Active Substance: SERTRALINE HYDROCHLORIDE
     Indication: Product used for unknown indication
     Dosage: 50 MG, QD EVERY MORNING
     Route: 065
  73. SERTRALINE [Suspect]
     Active Substance: SERTRALINE HYDROCHLORIDE
     Dosage: UNK, INJECTION
     Route: 041
     Dates: start: 20171103, end: 20171106
  74. BENDROFLUMETHIAZIDE [Suspect]
     Active Substance: BENDROFLUMETHIAZIDE
     Indication: Product used for unknown indication
     Dosage: 2.5 MG, QD EVERY MORNING
     Route: 065
  75. BENDROFLUMETHIAZIDE [Suspect]
     Active Substance: BENDROFLUMETHIAZIDE
     Indication: Plasma cell leukaemia
     Dosage: 3 MG
     Route: 065
  76. BENDROFLUMETHIAZIDE [Suspect]
     Active Substance: BENDROFLUMETHIAZIDE
     Dosage: UNK (1.8 MG/M2 Q_CYCLE / 1.3 MG/M2 )
     Route: 065
  77. BENDROFLUMETHIAZIDE [Suspect]
     Active Substance: BENDROFLUMETHIAZIDE
     Dosage: 2 MG, QD
     Route: 065
     Dates: start: 20171103, end: 20171103
  78. BENDROFLUMETHIAZIDE [Suspect]
     Active Substance: BENDROFLUMETHIAZIDE
     Dosage: 10 MG, QD
     Route: 065
  79. BENDROFLUMETHIAZIDE [Suspect]
     Active Substance: BENDROFLUMETHIAZIDE
     Dosage: 2 MG, QD
     Route: 065
     Dates: start: 20171107, end: 201711
  80. BENDROFLUMETHIAZIDE [Suspect]
     Active Substance: BENDROFLUMETHIAZIDE
     Dosage: 2 MG, QD
     Route: 065
     Dates: start: 20171110, end: 20171114
  81. BENDROFLUMETHIAZIDE [Suspect]
     Active Substance: BENDROFLUMETHIAZIDE
     Dosage: 1.3 MG/M2 (EVERY CYCLE)
     Route: 058
     Dates: start: 20171106, end: 20171106
  82. BENDROFLUMETHIAZIDE [Suspect]
     Active Substance: BENDROFLUMETHIAZIDE
     Dosage: 1.8 MG
     Route: 058
     Dates: start: 20171103, end: 20171103
  83. BENDROFLUMETHIAZIDE [Suspect]
     Active Substance: BENDROFLUMETHIAZIDE
     Dosage: 1.3 MG/M2 (EVERY CYCLE)
     Route: 058
     Dates: start: 20171110, end: 20171110
  84. BENDROFLUMETHIAZIDE [Suspect]
     Active Substance: BENDROFLUMETHIAZIDE
     Dosage: 1.8 MG
     Route: 058
     Dates: start: 20171107, end: 201711
  85. BENDROFLUMETHIAZIDE [Suspect]
     Active Substance: BENDROFLUMETHIAZIDE
     Dosage: 1.8 MG
     Route: 058
     Dates: start: 20171110, end: 20171114
  86. BENDROFLUMETHIAZIDE [Suspect]
     Active Substance: BENDROFLUMETHIAZIDE
     Dosage: UNK
     Route: 065
  87. OMEPRAZOLE [Suspect]
     Active Substance: OMEPRAZOLE
     Indication: Product used for unknown indication
     Dosage: 20 MG, QD (EVERY MORNING)
     Route: 048
  88. OMEPRAZOLE [Suspect]
     Active Substance: OMEPRAZOLE
     Dosage: 20 MILLIGRAM, ONCE A DAY, UNSPECIFIED, EVERY MORNING
     Route: 065
  89. RAMIPRIL [Suspect]
     Active Substance: RAMIPRIL
     Indication: Product used for unknown indication
     Dosage: 10 MG, QD EVERY MORNING
     Route: 048
  90. METOCLOPRAMIDE [Suspect]
     Active Substance: METOCLOPRAMIDE
     Indication: Product used for unknown indication
     Dosage: 10 MG, PRN
     Route: 065
  91. FENTANYL CITRATE [Suspect]
     Active Substance: FENTANYL CITRATE
     Indication: Product used for unknown indication
     Dosage: 12 UG (12 UG/INHAL, UNK)
     Route: 055
     Dates: start: 20171108
  92. FENTANYL CITRATE [Suspect]
     Active Substance: FENTANYL CITRATE
     Dosage: 12 UG (12 UG/INHAL, UNK)
     Route: 055
  93. FENTANYL CITRATE [Suspect]
     Active Substance: FENTANYL CITRATE
     Dosage: 12 MCG, 12 UG, 1 DOSE IN 1 HR
     Route: 065
     Dates: start: 20171108
  94. FENTANYL CITRATE [Suspect]
     Active Substance: FENTANYL CITRATE
     Dosage: 12 UG (12 UG/INHAL)
     Route: 055
  95. FENTANYL CITRATE [Suspect]
     Active Substance: FENTANYL CITRATE
     Dosage: 12 MCG, 12 UG, 1 DOSE IN 1 HR
     Route: 055
     Dates: start: 20171108
  96. FENTANYL CITRATE [Suspect]
     Active Substance: FENTANYL CITRATE
     Dosage: 12 MCG
     Route: 065
     Dates: start: 20171108
  97. BORTEZOMIB [Suspect]
     Active Substance: BORTEZOMIB
     Indication: Plasma cell leukaemia
     Dosage: 1.8 MG
     Route: 058
     Dates: start: 20171107, end: 201711
  98. BORTEZOMIB [Suspect]
     Active Substance: BORTEZOMIB
     Dosage: 1.8 MG
     Route: 058
     Dates: start: 20171110, end: 20171114
  99. DEXAMETHASONE [Suspect]
     Active Substance: DEXAMETHASONE
     Indication: Product used for unknown indication
     Dosage: 20 MG, QD
     Route: 065
     Dates: start: 20171102, end: 20171106
  100. DEXAMETHASONE [Suspect]
     Active Substance: DEXAMETHASONE
     Dosage: 20 MG, QD
     Route: 065

REACTIONS (14)
  - Off label use [Unknown]
  - Product use in unapproved indication [Unknown]
  - Drug abuse [Unknown]
  - Medication error [Unknown]
  - Intentional product misuse [Unknown]
  - Incorrect route of product administration [Unknown]
  - Confusional state [Recovered/Resolved]
  - Emotional distress [Not Recovered/Not Resolved]
  - Abnormal behaviour [Recovered/Resolved]
  - Agitation [Recovered/Resolved]
  - Paranoia [Recovered/Resolved]
  - Hallucination [Recovered/Resolved]
  - Disorientation [Recovered/Resolved]
  - Disturbance in social behaviour [Recovered/Resolved]

NARRATIVE: CASE EVENT DATE: 20171107
